FAERS Safety Report 12325026 (Version 1)
Quarter: 2016Q2

REPORT INFORMATION
  Report Type: Spontaneous
  Country: US (occurrence: US)
  Receive Date: 20160502
  Receipt Date: 20160502
  Transmission Date: 20160815
  Serious: No
  Sender: FDA-Public Use
  Company Number: US-BAYER-2016-084014

PATIENT
  Age: 25 Year
  Sex: Female

DRUGS (1)
  1. BEYAZ [Suspect]
     Active Substance: DROSPIRENONE\ETHINYL ESTRADIOL\LEVOMEFOLATE CALCIUM
     Dosage: UNK
     Route: 048
     Dates: start: 2015

REACTIONS (3)
  - Drug dose omission [None]
  - Abnormal withdrawal bleeding [None]
  - Abnormal withdrawal bleeding [None]

NARRATIVE: CASE EVENT DATE: 2015
